FAERS Safety Report 10328527 (Version 1)
Quarter: 2014Q3

REPORT INFORMATION
  Report Type: Spontaneous
  Country: NL (occurrence: None)
  Receive Date: 20140717
  Receipt Date: 20140717
  Transmission Date: 20150326
  Serious: Yes (Other)
  Sender: FDA-Public Use
  Company Number: 2014NL00661

PATIENT

DRUGS (3)
  1. PACLITAXEL(PACLITAXEL) [Suspect]
     Active Substance: PACLITAXEL
     Indication: OESOPHAGEAL CARCINOMA
     Dosage: 50 MG/M2, 5 TIMES DURING A 4 WEEK RADIOTEHRAPY, INTRAVENOUS
     Route: 042
  2. CARBOPLATIN (CARBOPLATIN) INJECTION [Suspect]
     Active Substance: CARBOPLATIN
     Indication: OESOPHAGEAL CARCINOMA
     Dosage: AUC=2,5 TIMES DURING A 4 WEEK RADIOTHERAPY, INTRAVENOUS
     Route: 042
  3. RADIOTHERAPY [Suspect]
     Active Substance: RADIATION THERAPY
     Indication: OESOPHAGEAL CARCINOMA
     Dosage: 41.4 GY GIVEN IN 23 FRACTIONS OF 1.8 GY

REACTIONS (2)
  - Metastases to peritoneum [None]
  - Metastases to liver [None]
